FAERS Safety Report 7720067-2 (Version None)
Quarter: 2011Q3

REPORT INFORMATION
  Report Type: 
  Country: None (occurrence: None)
  Receive Date: 20110824
  Receipt Date: 20110809
  Transmission Date: 20111222
  Serious: Yes (Life-Threatening, Hospitalization)
  Sender: FDA-Public Use
  Company Number: 2011MA011569

PATIENT
  Age: 52 Year
  Sex: Female

DRUGS (1)
  1. CARBAMAZEPINE [Suspect]

REACTIONS (4)
  - DRUG HYPERSENSITIVITY [None]
  - QUADRIPARESIS [None]
  - NEUROMYELITIS OPTICA [None]
  - CARDIAC ARREST [None]
